FAERS Safety Report 15402151 (Version 2)
Quarter: 2018Q3

REPORT INFORMATION
  Report Type: Spontaneous
  Country: PT (occurrence: PT)
  Receive Date: 20180919
  Receipt Date: 20180924
  Transmission Date: 20181010
  Serious: Yes (Death, Hospitalization, Other)
  Sender: FDA-Public Use
  Company Number: PT-PFIZER INC-2018375005

PATIENT
  Age: 56 Year
  Sex: Male

DRUGS (2)
  1. RAMIPRIL. [Suspect]
     Active Substance: RAMIPRIL
     Indication: HYPERTENSION
     Dosage: UNK
     Route: 065
  2. RILUZOLE. [Interacting]
     Active Substance: RILUZOLE
     Indication: AMYOTROPHIC LATERAL SCLEROSIS
     Dosage: 50 MG, 2X/DAY
     Route: 065

REACTIONS (9)
  - Abdominal pain [Fatal]
  - Portal hypertension [Fatal]
  - Vomiting [Fatal]
  - Pancreatitis acute [Fatal]
  - Pancreatitis necrotising [Fatal]
  - Pseudocyst [Fatal]
  - Nausea [Fatal]
  - Portal vein thrombosis [Fatal]
  - Drug interaction [Fatal]
